FAERS Safety Report 5626808-2 (Version None)
Quarter: 2008Q1

REPORT INFORMATION
  Report Type: 
  Country: None (occurrence: None)
  Receive Date: 20080212
  Receipt Date: 20080125
  Transmission Date: 20080703
  Serious: Yes (Hospitalization)
  Sender: FDA-Public Use
  Company Number: 2008US000010

PATIENT
  Age: 62 Year
  Sex: Female
  Weight: 78.9 kg

DRUGS (1)
  1. AMEVIVE [Suspect]
     Indication: PSORIASIS
     Dosage: 15 MG, WEEKLY, INTRAMUSCULAR
     Route: 030
     Dates: start: 20040617, end: 20070531

REACTIONS (6)
  - ASTHMA [None]
  - ATRIAL FIBRILLATION [None]
  - ATRIAL FLUTTER [None]
  - GASTROINTESTINAL HAEMORRHAGE [None]
  - PULMONARY HYPERTENSION [None]
  - SARCOIDOSIS [None]
